FAERS Safety Report 7823111-7 (Version None)
Quarter: 2011Q4

REPORT INFORMATION
  Report Type: 
  Country: None (occurrence: None)
  Receive Date: 20111019
  Receipt Date: 20111007
  Transmission Date: 20120403
  Serious: Yes (Hospitalization)
  Sender: FDA-Public Use
  Company Number: DE-BIOGENIDEC-2011BI017796

PATIENT
  Age: 61 Year
  Sex: Female
  Weight: 120 kg

DRUGS (3)
  1. AVONEX [Suspect]
     Indication: MULTIPLE SCLEROSIS
     Route: 030
     Dates: start: 20100601
  2. ANTIHYPERTENSIVE DRUG NOS [Concomitant]
     Indication: HYPERTENSION
  3. IBUPROFEN [Concomitant]
     Indication: PROPHYLAXIS
     Route: 048
     Dates: start: 20100601

REACTIONS (6)
  - DEPRESSION [None]
  - ENDOMETRIAL CANCER [None]
  - VERTEBROBASILAR INSUFFICIENCY [None]
  - INFLUENZA LIKE ILLNESS [None]
  - HYPERTENSIVE CRISIS [None]
  - INJECTION SITE HAEMORRHAGE [None]
